FAERS Safety Report 15654461 (Version 1)
Quarter: 2018Q4

REPORT INFORMATION
  Report Type: Spontaneous
  Country: US (occurrence: US)
  Receive Date: 20181126
  Receipt Date: 20181126
  Transmission Date: 20190205
  Serious: No
  Sender: FDA-Public Use
  Company Number: US-ELI_LILLY_AND_COMPANY-US201811009845

PATIENT
  Sex: Female

DRUGS (1)
  1. TRULICITY [Suspect]
     Active Substance: DULAGLUTIDE
     Indication: TYPE 2 DIABETES MELLITUS
     Dosage: 1.5 MG, UNKNOWN
     Route: 058

REACTIONS (12)
  - Sluggishness [Unknown]
  - Pain [Unknown]
  - Abdominal discomfort [Recovering/Resolving]
  - Constipation [Unknown]
  - Abdominal pain upper [Unknown]
  - Sleep disorder due to a general medical condition [Unknown]
  - Nausea [Recovering/Resolving]
  - Fatigue [Unknown]
  - Burning sensation [Recovering/Resolving]
  - Myalgia [Unknown]
  - Bowel movement irregularity [Unknown]
  - Vomiting [Unknown]
